FAERS Safety Report 23350091 (Version 1)
Quarter: 2023Q4

REPORT INFORMATION
  Report Type: Report from Study
  Country: CA (occurrence: CA)
  Receive Date: 20231229
  Receipt Date: 20231229
  Transmission Date: 20240110
  Serious: Yes (Hospitalization)
  Sender: FDA-Public Use
  Company Number: CA-TEVA-VS-3138437

PATIENT
  Age: 85 Year

DRUGS (10)
  1. TERIPARATIDE [Suspect]
     Active Substance: TERIPARATIDE
     Indication: Osteoporosis
     Route: 058
     Dates: start: 20220831
  2. Mylan Simvastatin [Concomitant]
     Indication: Blood cholesterol abnormal
     Dosage: AT NIGHT
  3. APO CLOPIDOGREL [Concomitant]
     Indication: Anticoagulant therapy
  4. CIPRALEX [Concomitant]
     Active Substance: ESCITALOPRAM OXALATE
     Indication: Antidepressant therapy
  5. DIAZEPAM [Concomitant]
     Active Substance: DIAZEPAM
     Indication: Panic attack
     Dosage: ONE OR TWO DAILY NEEDED
  6. PROLIA [Concomitant]
     Active Substance: DENOSUMAB
     Indication: Osteoporosis
     Route: 058
     Dates: start: 201310
  7. TYLENOL [Concomitant]
     Active Substance: ACETAMINOPHEN
  8. TYLENOL [Concomitant]
     Active Substance: ACETAMINOPHEN
  9. CLOXACILLIN [Concomitant]
     Active Substance: CLOXACILLIN
     Indication: Endocarditis
  10. AZITHROMYCIN [Concomitant]
     Active Substance: AZITHROMYCIN
     Indication: Antibiotic therapy

REACTIONS (1)
  - Malaise [Unknown]
